FAERS Safety Report 20194967 (Version 1)
Quarter: 2021Q4

REPORT INFORMATION
  Report Type: Spontaneous
  Country: US (occurrence: None)
  Receive Date: 20211216
  Receipt Date: 20211216
  Transmission Date: 20220303
  Serious: Yes (Disabling)
  Sender: FDA-Public Use
  Company Number: None

PATIENT
  Age: 52 Year
  Sex: Female
  Weight: 58.95 kg

DRUGS (1)
  1. MIRALAX [Suspect]
     Active Substance: POLYETHYLENE GLYCOL 3350
     Indication: Constipation
     Dosage: OTHER QUANTITY : 17 GRAMS;?FREQUENCY : AT BEDTIME;?
     Route: 048
     Dates: start: 20211201, end: 20211206

REACTIONS (9)
  - Hypertension [None]
  - Heart rate increased [None]
  - Arrhythmia [None]
  - Throat tightness [None]
  - Hypopnoea [None]
  - Blood calcium increased [None]
  - Abdominal distension [None]
  - Fluid retention [None]
  - Chills [None]

NARRATIVE: CASE EVENT DATE: 20211201
